FAERS Safety Report 8174870-8 (Version None)
Quarter: 2012Q1

REPORT INFORMATION
  Report Type: 
  Country: None (occurrence: None)
  Receive Date: 20120229
  Receipt Date: 20110317
  Transmission Date: 20120608
  Serious: No
  Sender: FDA-Public Use
  Company Number: US-GLAXOSMITHKLINE-A0918685A

PATIENT
  Age: 62 Year
  Sex: Male

DRUGS (6)
  1. VITAMIN TAB [Concomitant]
  2. PRAVASTATIN [Concomitant]
  3. VALTREX [Suspect]
     Indication: GENITAL HERPES
     Dosage: 1G PER DAY
     Route: 048
     Dates: start: 19960901
  4. DILTIAZEM HCL [Concomitant]
  5. ASPIRIN [Concomitant]
  6. FLAX SEED OIL [Concomitant]

REACTIONS (3)
  - DRUG ADMINISTRATION ERROR [None]
  - DRUG INEFFECTIVE [None]
  - HERPES VIRUS INFECTION [None]
